FAERS Safety Report 19933523 (Version 1)
Quarter: 2021Q4

REPORT INFORMATION
  Report Type: Spontaneous
  Country: DE (occurrence: DE)
  Receive Date: 20211008
  Receipt Date: 20211008
  Transmission Date: 20220303
  Serious: Yes (Death)
  Sender: FDA-Public Use
  Company Number: DE-ELI_LILLY_AND_COMPANY-DE202106007610

PATIENT
  Age: 69 Year
  Sex: Male

DRUGS (6)
  1. CISPLATIN [Suspect]
     Active Substance: CISPLATIN
     Indication: Adenocarcinoma gastric
     Dosage: 75 MG/M2, Q3W
     Route: 065
     Dates: start: 201708, end: 201710
  2. DOCETAXEL [Suspect]
     Active Substance: DOCETAXEL
     Indication: Adenocarcinoma gastric
     Dosage: 75 MG/M2, Q3W
     Route: 065
     Dates: start: 201708, end: 201710
  3. PACLITAXEL [Suspect]
     Active Substance: PACLITAXEL
     Indication: Adenocarcinoma gastric
     Dosage: 8 MG/M2, UNKNOWN (D1, 8.15)
     Route: 065
     Dates: start: 201701, end: 201704
  4. FLUOROURACIL [Suspect]
     Active Substance: FLUOROURACIL
     Indication: Adenocarcinoma gastric
     Dosage: 750 MG, Q3W
     Route: 065
     Dates: start: 201708, end: 201710
  5. RAMUCIRUMAB [Suspect]
     Active Substance: RAMUCIRUMAB
     Indication: Adenocarcinoma gastric
     Dosage: 8 MG/KG, UNKNOWN (D1.15, Q4W)
     Route: 065
     Dates: start: 201701, end: 201704
  6. FLUOROURACIL\IRINOTECAN\LEUCOVORIN [Suspect]
     Active Substance: FLUOROURACIL\IRINOTECAN\LEUCOVORIN
     Indication: Adenocarcinoma gastric
     Dosage: UNK UNK, UNKNOWN
     Route: 065
     Dates: start: 201705, end: 201708

REACTIONS (6)
  - Malignant neoplasm progression [Fatal]
  - Hepatic pain [Unknown]
  - Weight decreased [Unknown]
  - Alopecia [Unknown]
  - Abdominal discomfort [Unknown]
  - Decreased appetite [Unknown]
